FAERS Safety Report 6438314-6 (Version None)
Quarter: 2009Q4

REPORT INFORMATION
  Report Type: 
  Country: None (occurrence: None)
  Receive Date: 20091112
  Receipt Date: 20091106
  Transmission Date: 20100525
  Serious: Yes (Life-Threatening, Hospitalization, Other)
  Sender: FDA-Public Use
  Company Number: PHHY2009DE48628

PATIENT
  Age: 64 Year
  Sex: Male
  Weight: 76 kg

DRUGS (14)
  1. MYFORTIC [Suspect]
     Indication: RENAL TRANSPLANT
     Dosage: 720 MG, BID
     Route: 048
     Dates: start: 20080901, end: 20081222
  2. MYFORTIC [Suspect]
     Indication: IMMUNOSUPPRESSION
  3. PROGRAF [Suspect]
     Indication: IMMUNOSUPPRESSION
     Dosage: 2 MG, BID
     Route: 048
     Dates: start: 20080101, end: 20081221
  4. AMLODIPINE [Concomitant]
     Indication: HYPERTENSION
     Dosage: 5 MG, BID
     Route: 048
     Dates: start: 20080101, end: 20081221
  5. BISOPROLOL [Concomitant]
     Indication: HYPERTENSION
     Dosage: 5 MG, QD
     Route: 048
     Dates: start: 20080101
  6. BISOPROLOL [Concomitant]
     Dosage: 2.5 MG, QD
  7. DOCITON [Concomitant]
     Indication: HYPERTENSION
     Dosage: 10 MG, TID
     Route: 048
     Dates: start: 20080101, end: 20081221
  8. EINSALPHA [Concomitant]
     Indication: RENAL OSTEODYSTROPHY
     Dosage: 0.5 UG, QD
     Route: 048
     Dates: start: 20080101, end: 20081221
  9. LASIX [Concomitant]
     Indication: CARDIAC FAILURE
     Dosage: 40 MG, QD
     Route: 048
     Dates: start: 20081201, end: 20081222
  10. CINACALCET HYDROCHLORIDE [Concomitant]
     Indication: HYPERPARATHYROIDISM
     Dosage: 30 MG, QD
     Route: 048
     Dates: start: 20080101, end: 20081221
  11. NOVONORM [Concomitant]
     Indication: TYPE 2 DIABETES MELLITUS
     Dosage: 2 MG, BID
     Route: 048
     Dates: start: 20080101, end: 20081221
  12. PANTOPRAZOLE SODIUM [Concomitant]
     Indication: PROPHYLAXIS AGAINST GASTROINTESTINAL ULCER
     Dosage: 40 MG, QD
     Route: 048
     Dates: start: 20080101
  13. RAMIPRIL [Concomitant]
     Indication: HYPERTENSION
     Dosage: 5 MG, BID
     Route: 048
     Dates: start: 20080101, end: 20081221
  14. SOLU-DECORTIN-H [Concomitant]
     Indication: IMMUNOSUPPRESSION
     Dosage: 30 MG, QD
     Route: 042
     Dates: start: 20080101

REACTIONS (14)
  - BLOOD CREATININE INCREASED [None]
  - C-REACTIVE PROTEIN INCREASED [None]
  - COUGH [None]
  - DIARRHOEA [None]
  - DYSPNOEA [None]
  - ENCEPHALITIS VIRAL [None]
  - GENITAL HERPES [None]
  - HERPES ZOSTER [None]
  - LOSS OF CONSCIOUSNESS [None]
  - OEDEMA PERIPHERAL [None]
  - PNEUMOCYSTIS JIROVECI PNEUMONIA [None]
  - RENAL IMPAIRMENT [None]
  - URINARY TRACT INFECTION [None]
  - VASCULITIS [None]
